FAERS Safety Report 20866412 (Version 4)
Quarter: 2023Q2

REPORT INFORMATION
  Report Type: Spontaneous
  Country: US (occurrence: US)
  Receive Date: 20220524
  Receipt Date: 20230608
  Transmission Date: 20230722
  Serious: Yes (Other)
  Sender: FDA-Public Use
  Company Number: US-PFIZER INC-202200586507

PATIENT
  Age: 73 Year
  Sex: Male

DRUGS (2)
  1. SOMAVERT [Suspect]
     Active Substance: PEGVISOMANT
     Indication: Acromegaly
     Dosage: 20 MG (6 DAYS A WEEK)
     Route: 058
     Dates: start: 202204, end: 20230331
  2. SOMAVERT [Suspect]
     Active Substance: PEGVISOMANT
     Indication: Brain neoplasm
     Dosage: 20 MG (5 DAYS PER WEEK, DAILY MONDAY - FRIDAY)
     Route: 058
     Dates: start: 20220412

REACTIONS (5)
  - Benign renal neoplasm [Unknown]
  - Injection site bruising [Unknown]
  - Drug effective for unapproved indication [Unknown]
  - Off label use [Unknown]
  - Off label use [Unknown]

NARRATIVE: CASE EVENT DATE: 20220401
